FAERS Safety Report 9487077 (Version 2)
Quarter: 2013Q4

REPORT INFORMATION
  Report Type: Spontaneous
  Country: DE (occurrence: DE)
  Receive Date: 20130829
  Receipt Date: 20131112
  Transmission Date: 20140711
  Serious: Yes (Death)
  Sender: FDA-Public Use
  Company Number: DE-CELGENEUS-062-21660-13081671

PATIENT
  Age: 76 Year
  Sex: Female

DRUGS (1)
  1. ABRAXANE [Suspect]
     Indication: ENDOMETRIAL CANCER METASTATIC
     Route: 041
     Dates: start: 201301, end: 201302

REACTIONS (1)
  - Endometrial cancer metastatic [Fatal]
